FAERS Safety Report 7232878-0 (Version None)
Quarter: 2011Q1

REPORT INFORMATION
  Report Type: 
  Country: None (occurrence: None)
  Receive Date: 20110119
  Receipt Date: 20110113
  Transmission Date: 20110831
  Serious: Yes (Hospitalization, Other)
  Sender: FDA-Public Use
  Company Number: GB-PFIZER INC-2011009494

PATIENT
  Age: 85 Year
  Sex: Male

DRUGS (11)
  1. MIXTARD HUMAN 70/30 [Concomitant]
     Dosage: TAKEN TWICE DAILY
     Route: 058
  2. OMEPRAZOLE [Concomitant]
     Dosage: 20 MG, UNK
     Route: 048
  3. ACETYLSALICYLIC ACID [Concomitant]
     Dosage: 75 MG, 1X/DAY
     Route: 048
  4. AMOXICILLIN [Concomitant]
     Dosage: 500 MG, 3X/DAY
     Route: 048
  5. ISOSORBIDE MONONITRATE [Concomitant]
     Dosage: 10 MG, 2X/DAY
     Route: 048
  6. URSODEOXYCHOLIC ACID [Concomitant]
     Dosage: 150 MG, 2X/DAY
     Route: 048
  7. LIPITOR [Suspect]
     Dosage: 80 MG, 1X/DAY
     Route: 048
  8. FERROUS SULFATE TAB [Concomitant]
     Dosage: 200 MG, 2X/DAY
     Route: 048
  9. BISOPROLOL [Concomitant]
     Dosage: 3.75 MG, UNK
     Route: 048
  10. CLOPIDOGREL [Concomitant]
     Dosage: 75 MG, 1X/DAY
     Route: 048
  11. TAMSULOSIN [Concomitant]
     Dosage: 400 UG, 1X/DAY
     Route: 048

REACTIONS (5)
  - MYOSITIS [None]
  - RHABDOMYOLYSIS [None]
  - ALANINE AMINOTRANSFERASE INCREASED [None]
  - RENAL FAILURE ACUTE [None]
  - GAMMA-GLUTAMYLTRANSFERASE INCREASED [None]
